FAERS Safety Report 18398327 (Version 1)
Quarter: 2020Q4

REPORT INFORMATION
  Report Type: Spontaneous
  Country: IT (occurrence: IT)
  Receive Date: 20201019
  Receipt Date: 20201019
  Transmission Date: 20210114
  Serious: Yes (Death)
  Sender: FDA-Public Use
  Company Number: IT-ASTRAZENECA-2020SF33132

PATIENT
  Age: 67 Year
  Sex: Male

DRUGS (10)
  1. TORVAST [Concomitant]
     Active Substance: ATORVASTATIN
  2. ZYLORIC [Concomitant]
     Active Substance: ALLOPURINOL
  3. PANTORC [Concomitant]
     Active Substance: PANTOPRAZOLE SODIUM
  4. AMLODIPINE [Concomitant]
     Active Substance: AMLODIPINE BESYLATE
  5. TRIATEC [RAMIPRIL] [Concomitant]
     Active Substance: RAMIPRIL
  6. ABASAGLAR [Suspect]
     Active Substance: INSULIN GLARGINE
     Indication: TYPE 2 DIABETES MELLITUS
     Route: 058
     Dates: start: 20180901, end: 20200928
  7. XIGDUO XR [Suspect]
     Active Substance: DAPAGLIFLOZIN PROPANEDIOL\METFORMIN HYDROCHLORIDE
     Indication: TYPE 2 DIABETES MELLITUS
     Route: 048
     Dates: start: 20180901, end: 20200928
  8. METFORAL [Suspect]
     Active Substance: METFORMIN HYDROCHLORIDE
     Indication: TYPE 2 DIABETES MELLITUS
     Route: 048
     Dates: start: 20180901, end: 20200928
  9. CARDIOASPIRIN [Concomitant]
     Active Substance: ASPIRIN
  10. LASIX [Concomitant]
     Active Substance: FUROSEMIDE

REACTIONS (5)
  - Respiratory failure [Fatal]
  - Lactic acidosis [Fatal]
  - Coma [Fatal]
  - Death [Fatal]
  - Renal failure [Fatal]

NARRATIVE: CASE EVENT DATE: 20200928
